FAERS Safety Report 21005626 (Version 1)
Quarter: 2022Q2

REPORT INFORMATION
  Report Type: Spontaneous
  Country: CA (occurrence: CA)
  Receive Date: 20220624
  Receipt Date: 20220624
  Transmission Date: 20220721
  Serious: Yes (Other)
  Sender: FDA-Public Use
  Company Number: CA-PFIZER INC-PV202200000910

PATIENT
  Age: 56 Year
  Sex: Female

DRUGS (3)
  1. VENLAFAXINE HCL [Suspect]
     Active Substance: VENLAFAXINE HYDROCHLORIDE
     Indication: Depression
     Dosage: 37.5 MG, 1X/DAY
     Route: 048
  2. DULOXETINE [Suspect]
     Active Substance: DULOXETINE
     Indication: Depression
     Dosage: 60 MG, 1X/DAY
     Route: 048
  3. DULOXETINE [Suspect]
     Active Substance: DULOXETINE
     Indication: Anxiety disorder
     Dosage: 30 MG, 1X/DAY
     Route: 048

REACTIONS (5)
  - Malabsorption [Recovered/Resolved]
  - Colitis microscopic [Recovered/Resolved]
  - Lymphocytic oesophagitis [Not Recovered/Not Resolved]
  - Gastritis [Not Recovered/Not Resolved]
  - Intestinal intraepithelial lymphocytes increased [Not Recovered/Not Resolved]
